FAERS Safety Report 4329946-X (Version None)
Quarter: 2004Q1

REPORT INFORMATION
  Report Type: 
  Country: None (occurrence: None)
  Receive Date: 20040329
  Receipt Date: 20040316
  Transmission Date: 20041129
  Serious: Yes (Death)
  Sender: FDA-Public Use
  Company Number: 040319-0000313

PATIENT
  Age: 29 Year
  Sex: Male

DRUGS (1)
  1. METHAMPHETAMINE HCL [Suspect]
     Dosage: .25 GM;QD;NAS
     Route: 045

REACTIONS (3)
  - AORTIC DISSECTION [None]
  - DRUG ABUSER [None]
  - DRUG TOXICITY [None]
